FAERS Safety Report 9728711 (Version 1)
Quarter: 2013Q4

REPORT INFORMATION
  Report Type: Spontaneous
  Country: BR (occurrence: BR)
  Receive Date: 20131204
  Receipt Date: 20131204
  Transmission Date: 20140711
  Serious: Yes (Death, Other)
  Sender: FDA-Public Use
  Company Number: BR-PFIZER INC-2013344230

PATIENT
  Age: 76 Year
  Sex: Female

DRUGS (1)
  1. SUTENT [Suspect]
     Indication: NEOPLASM MALIGNANT
     Dosage: 50 MG, CYCLIC 4X2
     Dates: start: 20131109

REACTIONS (4)
  - Multi-organ failure [Fatal]
  - Immune system disorder [Unknown]
  - Disease progression [Unknown]
  - Neoplasm malignant [Unknown]
